FAERS Safety Report 11029311 (Version 2)
Quarter: 2015Q2

REPORT INFORMATION
  Report Type: Report from Study
  Country: CA (occurrence: CA)
  Receive Date: 20150415
  Receipt Date: 20150610
  Transmission Date: 20150821
  Serious: Yes (Other)
  Sender: FDA-Public Use
  Company Number: CA-AMGEN-CANSL2015034677

PATIENT
  Age: 67 Year
  Sex: Female

DRUGS (4)
  1. CHAMPIX [Concomitant]
     Active Substance: VARENICLINE TARTRATE
     Indication: TOBACCO USER
     Dosage: UNK
  2. SPIRIVA [Concomitant]
     Active Substance: TIOTROPIUM BROMIDE MONOHYDRATE
  3. PROLIA [Suspect]
     Active Substance: DENOSUMAB
     Indication: OSTEOPOROSIS POSTMENOPAUSAL
     Dosage: 60 MG, Q6MO
     Route: 058
     Dates: start: 20140626
  4. VITAMIN D                          /00107901/ [Concomitant]
     Active Substance: ERGOCALCIFEROL
     Dosage: 4000 IU, QD

REACTIONS (10)
  - Sinus disorder [Recovered/Resolved]
  - Rheumatoid arthritis [Unknown]
  - Ocular hyperaemia [Recovered/Resolved]
  - Eye infection [Recovered/Resolved]
  - Plantar fasciitis [Unknown]
  - Paraesthesia oral [Unknown]
  - Paraesthesia [Not Recovered/Not Resolved]
  - Eye irritation [Recovered/Resolved]
  - Osteoarthritis [Unknown]
  - Pain in extremity [Unknown]

NARRATIVE: CASE EVENT DATE: 201502
